FAERS Safety Report 5658098-9 (Version None)
Quarter: 2008Q1

REPORT INFORMATION
  Report Type: 
  Country: None (occurrence: None)
  Receive Date: 20080310
  Receipt Date: 20070227
  Transmission Date: 20080703
  Serious: No
  Sender: FDA-Public Use
  Company Number: US-BAYER-200615062BCC

PATIENT
  Age: 78 Year
  Sex: Male
  Weight: 83 kg

DRUGS (5)
  1. ALEVE [Suspect]
     Indication: PAIN IN EXTREMITY
     Dosage: UNIT DOSE: 220 MG
     Route: 048
     Dates: start: 20061216
  2. ASPIRIN [Suspect]
     Indication: DRUG USE FOR UNKNOWN INDICATION
     Route: 048
  3. XANAX [Concomitant]
  4. DOXEPIN HCL [Concomitant]
  5. MIRAPEX [Concomitant]

REACTIONS (2)
  - ERECTILE DYSFUNCTION [None]
  - WEIGHT INCREASED [None]
